FAERS Safety Report 14220475 (Version 5)
Quarter: 2018Q1

REPORT INFORMATION
  Report Type: Report from Study
  Country: DE (occurrence: DE)
  Receive Date: 20171124
  Receipt Date: 20180119
  Transmission Date: 20180508
  Serious: Yes (Hospitalization)
  Sender: FDA-Public Use
  Company Number: DE-GLAXOSMITHKLINE-DE2017176918

PATIENT
  Age: 59 Year
  Sex: Female
  Weight: 81.2 kg

DRUGS (2)
  1. ALBIGLUTIDE [Suspect]
     Active Substance: ALBIGLUTIDE
     Dosage: UNK UNK, WE
     Route: 058
     Dates: start: 20160809, end: 20171212
  2. ALBIGLUTIDE [Suspect]
     Active Substance: ALBIGLUTIDE
     Indication: TYPE 2 DIABETES MELLITUS
     Dosage: UNK UNK, WE
     Route: 058
     Dates: start: 20151215, end: 20160802

REACTIONS (1)
  - Colitis [Recovered/Resolved]

NARRATIVE: CASE EVENT DATE: 20171117
